FAERS Safety Report 16499770 (Version 3)
Quarter: 2019Q4

REPORT INFORMATION
  Report Type: Spontaneous
  Country: SK (occurrence: SK)
  Receive Date: 20190701
  Receipt Date: 20191123
  Transmission Date: 20200122
  Serious: Yes (Hospitalization, Other)
  Sender: FDA-Public Use
  Company Number: SK-ACCORD-135126

PATIENT
  Age: 53 Year
  Sex: Female

DRUGS (26)
  1. DOXORUBICIN [Suspect]
     Active Substance: DOXORUBICIN
     Indication: BREAST CANCER
     Dosage: REPEATED CYCLES?240 MG / M2, WITH DOSES UP TO 300 MG / M2
  2. OXYCODONE/NALOXONE [Concomitant]
     Active Substance: NALOXONE HYDROCHLORIDE\OXYCODONE HYDROCHLORIDE
  3. PARACETAMOL [Concomitant]
     Active Substance: ACETAMINOPHEN
  4. MILURIT [Concomitant]
     Active Substance: ALLOPURINOL
  5. DOCETAXEL. [Suspect]
     Active Substance: DOCETAXEL
     Indication: BREAST CANCER
     Dosage: REPEATED CYCLES
  6. CYCLOPHOSPHAMIDE/CYCLOPHOSPHAMIDE MONOHYDRATE [Suspect]
     Active Substance: CYCLOPHOSPHAMIDE
     Indication: BREAST CANCER
     Dosage: REPEATED CYCLES
  7. METAMIZOLE SODIUM [Concomitant]
     Active Substance: METAMIZOLE SODIUM
  8. TRASTUZUMAB. [Suspect]
     Active Substance: TRASTUZUMAB
     Indication: BREAST CANCER
     Dosage: REPEATED CYCLES
  9. RIVAROXABAN [Concomitant]
     Active Substance: RIVAROXABAN
  10. TRIMETAZIDINE [Concomitant]
     Active Substance: TRIMETAZIDINE
  11. MAGNESIUM [Concomitant]
     Active Substance: MAGNESIUM
  12. UBIDECARENONE [Concomitant]
     Active Substance: UBIDECARENONE
  13. LEVOSIMENDAN [Concomitant]
     Active Substance: LEVOSIMENDAN
  14. NEOTONE [Concomitant]
  15. SACUBITRIL/VALSARTAN [Concomitant]
     Active Substance: SACUBITRIL\VALSARTAN
  16. FUROSEMIDE. [Suspect]
     Active Substance: FUROSEMIDE
     Indication: DIURETIC THERAPY
  17. CARVEDILOL/CARVEDILOL HYDROCHLODRIDE [Concomitant]
     Active Substance: CARVEDILOL HYDROCHLORIDE
  18. EPLERENONE. [Concomitant]
     Active Substance: EPLERENONE
  19. METOPROLOL. [Concomitant]
     Active Substance: METOPROLOL
  20. NOREPINEPHRINE. [Concomitant]
     Active Substance: NOREPINEPHRINE
  21. LETROZOLE. [Suspect]
     Active Substance: LETROZOLE
     Indication: BREAST CANCER
  22. CANDESARTAN. [Concomitant]
     Active Substance: CANDESARTAN
  23. IVABRADINE/IVABRADINE HYDROCHLORIDE [Concomitant]
     Active Substance: IVABRADINE HYDROCHLORIDE
  24. TRANDOLAPRIL. [Concomitant]
     Active Substance: TRANDOLAPRIL
  25. SPIRONOLACTONE. [Concomitant]
     Active Substance: SPIRONOLACTONE
  26. LEVOCARNITINE. [Concomitant]
     Active Substance: LEVOCARNITINE

REACTIONS (4)
  - Congestive cardiomyopathy [Recovering/Resolving]
  - Cough [Unknown]
  - Fatigue [Unknown]
  - Cardiac failure chronic [Unknown]

NARRATIVE: CASE EVENT DATE: 201601
